FAERS Safety Report 5822014-7 (Version None)
Quarter: 2008Q3

REPORT INFORMATION
  Report Type: 
  Country: None (occurrence: None)
  Receive Date: 20080724
  Receipt Date: 20080714
  Transmission Date: 20090109
  Serious: Yes (Hospitalization, Other)
  Sender: FDA-Public Use
  Company Number: GB-ABBOTT-08P-167-0462883-00

PATIENT
  Sex: Female
  Weight: 74 kg

DRUGS (6)
  1. HUMIRA [Suspect]
     Indication: RHEUMATOID ARTHRITIS
     Route: 058
     Dates: start: 20070415
  2. PREDNISOLONE SODIUM PHOSPHATE [Concomitant]
     Indication: DRUG USE FOR UNKNOWN INDICATION
  3. GLICLAZIDE [Concomitant]
     Indication: DRUG USE FOR UNKNOWN INDICATION
  4. CODEINE SUL TAB [Concomitant]
     Indication: DRUG USE FOR UNKNOWN INDICATION
  5. LANSOPRAZOLE [Concomitant]
     Indication: DRUG USE FOR UNKNOWN INDICATION
  6. ACETAMINOPHEN [Concomitant]
     Indication: DRUG USE FOR UNKNOWN INDICATION

REACTIONS (2)
  - BLADDER PROLAPSE [None]
  - INTESTINAL PROLAPSE [None]
